FAERS Safety Report 8482999-X (Version None)
Quarter: 2012Q3

REPORT INFORMATION
  Report Type: 
  Country: None (occurrence: None)
  Receive Date: 20120702
  Receipt Date: 20120622
  Transmission Date: 20120928
  Serious: Yes (Hospitalization)
  Sender: FDA-Public Use
  Company Number: BR-JNJFOC-20120613318

PATIENT
  Age: 68 Year
  Sex: Female

DRUGS (2)
  1. SULFADIAZINE [Suspect]
     Indication: PARACOCCIDIOIDES INFECTION
     Route: 065
  2. ITRACONAZOLE [Suspect]
     Indication: PARACOCCIDIOIDES INFECTION
     Route: 048

REACTIONS (1)
  - DRUG INTOLERANCE [None]
